FAERS Safety Report 9556924 (Version 1)
Quarter: 2013Q3

REPORT INFORMATION
  Report Type: Spontaneous
  Country: CA (occurrence: None)
  Receive Date: 20130924
  Receipt Date: 20130924
  Transmission Date: 20140515
  Serious: Yes (Other)
  Sender: FDA-Public Use
  Company Number: 2013000253

PATIENT
  Age: 83 Year
  Sex: Female

DRUGS (2)
  1. ACEON (PERINDOPRIL ERBUMINE) TABLET, 2MG [Suspect]
     Route: 048
     Dates: start: 200801, end: 200803
  2. AGGRENOX (ACETYLSALICYLIC ACID, DIPYRIDAMOLE) [Concomitant]

REACTIONS (5)
  - Transient ischaemic attack [None]
  - Breast enlargement [None]
  - Alopecia [None]
  - Skin hypertrophy [None]
  - Breast pain [None]
